FAERS Safety Report 6316006-1 (Version None)
Quarter: 2009Q3

REPORT INFORMATION
  Report Type: 
  Country: None (occurrence: None)
  Receive Date: 20090819
  Receipt Date: 20090819
  Transmission Date: 20100115
  Serious: Yes (Life-Threatening, Other)
  Sender: FDA-Public Use
  Company Number: None

PATIENT
  Age: 49 Year
  Sex: Female
  Weight: 102.0593 kg

DRUGS (2)
  1. THYROID TAB [Suspect]
     Indication: AUTOIMMUNE THYROIDITIS
     Dosage: 90 MG 60MG/AM; 30MG/PM PO
     Route: 048
     Dates: start: 20090711, end: 20090818
  2. THYROID TAB [Suspect]
     Indication: HYPOTHYROIDISM
     Dosage: 90 MG 60MG/AM; 30MG/PM PO
     Route: 048
     Dates: start: 20090711, end: 20090818

REACTIONS (2)
  - HYPOTHYROIDISM [None]
  - PRODUCT FORMULATION ISSUE [None]
